FAERS Safety Report 23726956 (Version 1)
Quarter: 2024Q2

REPORT INFORMATION
  Report Type: Spontaneous
  Country: US (occurrence: US)
  Receive Date: 20240410
  Receipt Date: 20240410
  Transmission Date: 20240716
  Serious: No
  Sender: FDA-Public Use
  Company Number: US-SA-SAC20240404000811

PATIENT
  Sex: Female

DRUGS (1)
  1. DUPIXENT [Suspect]
     Active Substance: DUPILUMAB
     Indication: Dermatitis atopic
     Dosage: 300 MG, QOW
     Route: 058

REACTIONS (11)
  - Decreased appetite [Unknown]
  - Hyperphagia [Unknown]
  - Fatigue [Unknown]
  - Asthenia [Unknown]
  - Vision blurred [Unknown]
  - Scab [Unknown]
  - Dry skin [Unknown]
  - Pruritus [Unknown]
  - Insomnia [Unknown]
  - Dry eye [Unknown]
  - Eye pruritus [Unknown]
